FAERS Safety Report 20605078 (Version 1)
Quarter: 2022Q1

REPORT INFORMATION
  Report Type: Spontaneous
  Country: FR (occurrence: FR)
  Receive Date: 20220317
  Receipt Date: 20220317
  Transmission Date: 20220424
  Serious: Yes (Other)
  Sender: FDA-Public Use
  Company Number: FR-AMGEN-FRASP2019140544

PATIENT
  Age: 69 Year
  Sex: Female

DRUGS (4)
  1. CINACALCET [Suspect]
     Active Substance: CINACALCET
     Indication: Hyperparathyroidism
     Dosage: 30 MILLIGRAM, ONCE A DAY
     Route: 065
  2. PROLIA [Suspect]
     Active Substance: DENOSUMAB
     Indication: Hypercalcaemia
     Dosage: 60 MILLIGRAM (EVERY TWO-THREE MONTHS)
     Route: 058
  3. PAMIDRONATE [Concomitant]
     Active Substance: PAMIDRONATE DISODIUM
     Indication: Product used for unknown indication
     Dosage: UNK
     Route: 065
  4. CALCITRIOL [Concomitant]
     Active Substance: CALCITRIOL
     Indication: Product used for unknown indication
     Dosage: UNK
     Route: 065

REACTIONS (12)
  - Delayed graft function [Unknown]
  - Spinal cord compression [Unknown]
  - Nephrolithiasis [Unknown]
  - Hypoalbuminaemia [Unknown]
  - Transplant rejection [Unknown]
  - Arteriovenous fistula thrombosis [Unknown]
  - Granuloma [Unknown]
  - Foot fracture [Unknown]
  - Off label use [Unknown]
  - Aortic stenosis [Unknown]
  - Crystal nephropathy [Unknown]
  - Hypercalcaemia [Unknown]
